FAERS Safety Report 5571270-1 (Version None)
Quarter: 2007Q4

REPORT INFORMATION
  Report Type: 
  Country: None (occurrence: None)
  Receive Date: 20071221
  Receipt Date: 20070412
  Transmission Date: 20080405
  Serious: No
  Sender: FDA-Public Use
  Company Number: A0647015A

PATIENT
  Age: 67 Year
  Sex: Female

DRUGS (5)
  1. FLONASE [Suspect]
     Indication: DRUG USE FOR UNKNOWN INDICATION
     Dosage: 1SPR PER DAY
     Route: 045
     Dates: start: 20070410
  2. NORVASC [Concomitant]
  3. TENORMIN [Concomitant]
  4. FOSAMAX [Concomitant]
  5. SYNTHROID [Concomitant]

REACTIONS (2)
  - PHARYNGOLARYNGEAL PAIN [None]
  - RHINORRHOEA [None]
